FAERS Safety Report 6489952-6 (Version None)
Quarter: 2009Q4

REPORT INFORMATION
  Report Type: 
  Country: None (occurrence: None)
  Receive Date: 20091211
  Receipt Date: 20091203
  Transmission Date: 20100525
  Serious: Yes (Hospitalization)
  Sender: FDA-Public Use
  Company Number: PHEH2009US08832

PATIENT
  Sex: Female

DRUGS (2)
  1. EXJADE [Suspect]
     Dosage: 1750 MG DAILY
     Route: 048
  2. EXJADE [Suspect]
     Dosage: 2250 MG DAILY
     Route: 048
     Dates: start: 20090327, end: 20091030

REACTIONS (5)
  - ABDOMINAL PAIN UPPER [None]
  - ASTHMA [None]
  - NAUSEA [None]
  - SICKLE CELL ANAEMIA WITH CRISIS [None]
  - VOMITING [None]
